FAERS Safety Report 16233851 (Version 1)
Quarter: 2019Q2

REPORT INFORMATION
  Report Type: Spontaneous
  Country: US (occurrence: US)
  Receive Date: 20190423
  Receipt Date: 20190423
  Transmission Date: 20190711
  Serious: No
  Sender: FDA-Public Use
  Company Number: None

PATIENT
  Age: 15 Year
  Sex: Female
  Weight: 67.5 kg

DRUGS (1)
  1. DR. SCHOLLS INGROWN TOENAIL PAIN RELIEVER [Suspect]
     Active Substance: SODIUM SULFIDE
     Indication: INGROWING NAIL
     Dosage: ?          QUANTITY:1 FULL RETAINER RING;?
     Route: 061
     Dates: start: 20190422, end: 20190422

REACTIONS (1)
  - Application site pain [None]
